FAERS Safety Report 21483946 (Version 1)
Quarter: 2022Q4

REPORT INFORMATION
  Report Type: Report from Study
  Country: US (occurrence: US)
  Receive Date: 20221020
  Receipt Date: 20221020
  Transmission Date: 20230113
  Serious: No
  Sender: FDA-Public Use
  Company Number: US-ABBVIE-4164179

PATIENT
  Sex: Female

DRUGS (1)
  1. MAVYRET [Suspect]
     Active Substance: GLECAPREVIR\PIBRENTASVIR
     Indication: Drug dependence
     Dosage: TIME INTERVAL: 0.33333333 DAYS: 100-40MG
     Route: 048

REACTIONS (2)
  - Diarrhoea [Recovering/Resolving]
  - Muscular weakness [Unknown]
